FAERS Safety Report 26108708 (Version 1)
Quarter: 2025Q4

REPORT INFORMATION
  Report Type: Spontaneous
  Country: JP (occurrence: JP)
  Receive Date: 20251201
  Receipt Date: 20251201
  Transmission Date: 20260118
  Serious: Yes (Other)
  Sender: ALEXION PHARMACEUTICALS
  Company Number: JP-ASTRAZENECA-202511JPN026136JP

PATIENT
  Age: 5 Decade
  Sex: Male

DRUGS (1)
  1. DAPAGLIFLOZIN [Suspect]
     Active Substance: DAPAGLIFLOZIN
     Indication: Cerebral infarction
     Route: 065

REACTIONS (2)
  - Erythema multiforme [Recovered/Resolved]
  - Lymphocyte stimulation test positive [Unknown]
